FAERS Safety Report 13349581 (Version 1)
Quarter: 2017Q1

REPORT INFORMATION
  Report Type: Report from Study
  Country: CO (occurrence: CO)
  Receive Date: 20170320
  Receipt Date: 20170320
  Transmission Date: 20170428
  Serious: Yes (Death, Hospitalization)
  Sender: FDA-Public Use
  Company Number: PHHY2016CO091573

PATIENT
  Age: 44 Year
  Sex: Female

DRUGS (2)
  1. REVOLADE [Suspect]
     Active Substance: ELTROMBOPAG
     Indication: IMMUNE THROMBOCYTOPENIC PURPURA
     Dosage: 25 MG, QD
     Route: 048
     Dates: start: 20160716
  2. VALPROIC ACID. [Concomitant]
     Active Substance: VALPROIC ACID
     Indication: SEIZURE
     Route: 065

REACTIONS (2)
  - Platelet count decreased [Recovering/Resolving]
  - Cardiac arrest [Fatal]

NARRATIVE: CASE EVENT DATE: 201701
